FAERS Safety Report 4502886-9 (Version None)
Quarter: 2004Q4

REPORT INFORMATION
  Report Type: 
  Country: None (occurrence: None)
  Receive Date: 20041116
  Receipt Date: 20041116
  Transmission Date: 20050328
  Serious: Yes (Hospitalization)
  Sender: FDA-Public Use
  Company Number: None

PATIENT
  Age: 69 Year
  Sex: Male

DRUGS (1)
  1. CETUXIMAB [Suspect]
     Indication: CARCINOMA
     Dosage: 475MG  1 HR INFUSION  INTRAVENOUS
     Route: 042
     Dates: start: 20040811, end: 20040811

REACTIONS (5)
  - COUGH [None]
  - DYSPNOEA [None]
  - FLUSHING [None]
  - INFUSION RELATED REACTION [None]
  - WHEEZING [None]
